FAERS Safety Report 4435975-8 (Version None)
Quarter: 2004Q3

REPORT INFORMATION
  Report Type: 
  Country: None (occurrence: None)
  Receive Date: 20040826
  Receipt Date: 20040816
  Transmission Date: 20050211
  Serious: Yes (Hospitalization, Other)
  Sender: FDA-Public Use
  Company Number: USA-2002-0001486

PATIENT
  Age: 56 Year
  Sex: Male
  Weight: 86.2 kg

DRUGS (22)
  1. OXYCONTIN [Suspect]
     Indication: PAIN
     Dosage: MG, SEE TEXT, ORAL
     Route: 048
     Dates: start: 19990129, end: 20020322
  2. OXYIR             (OXYCODONE HYDROCHLORIDE) IR [Suspect]
     Indication: PAIN
     Dosage: MG, SEE TEXT, ORAL
     Route: 048
     Dates: start: 20000414, end: 20020301
  3. OXYFAST CONCENTRATE  (OXYCODONE HYDROCHLORIDE) [Suspect]
     Indication: PAIN
     Dosage: MG, SEE TEXT, ORAL
     Route: 048
     Dates: start: 19900622, end: 20020301
  4. OXYCODONE HCL [Suspect]
     Indication: PAIN
     Dosage: 20 MG, Q3H, PRN, ORAL
     Route: 048
     Dates: start: 19990129, end: 20000414
  5. CYCLOBENAZAPRINE           (CYCLOBENZAPRINE) [Concomitant]
  6. DIAZEPAM [Concomitant]
  7. NEURONTIN [Concomitant]
  8. BACLOFEN [Concomitant]
  9. PROVIGIL [Concomitant]
  10. METHADONE HCL [Concomitant]
  11. MIRALAX [Concomitant]
  12. PROPOXYPHINE HCL AND ACETAMINOPHEN (DEXTROPROPOXYPHENE HYDROCHLORIDE) [Concomitant]
  13. ASPIRIN [Concomitant]
  14. LORAZEPAM [Concomitant]
  15. LOPRESSOR [Concomitant]
  16. ZOCOR [Concomitant]
  17. IMDUR [Concomitant]
  18. SENOKOT-S (SENNA) [Concomitant]
  19. COMBIVENT (SALBUTAMOL SULFATE, IPRATROPIUM BROMIDE) [Concomitant]
  20. PULMICORT [Concomitant]
  21. NITROSTAT [Concomitant]
  22. PILOCARPINE (PILOCARPINE) OPHTHALMIC [Concomitant]

REACTIONS (42)
  - ACUTE MYOCARDIAL INFARCTION [None]
  - ANXIETY [None]
  - ASTHENIA [None]
  - CHEST PAIN [None]
  - COLD SWEAT [None]
  - CONFUSIONAL STATE [None]
  - CONSTIPATION [None]
  - CORONARY ARTERY OCCLUSION [None]
  - DECREASED APPETITE [None]
  - DEPRESSION [None]
  - DIARRHOEA [None]
  - DIZZINESS [None]
  - DRUG ABUSER [None]
  - DRUG DEPENDENCE [None]
  - DRUG WITHDRAWAL SYNDROME [None]
  - DRY MOUTH [None]
  - DYSPEPSIA [None]
  - DYSPNOEA [None]
  - ELECTROCARDIOGRAM ST-T CHANGE [None]
  - EMOTIONAL DISTRESS [None]
  - ERUCTATION [None]
  - FEELING ABNORMAL [None]
  - FEELING OF DESPAIR [None]
  - FLUSHING [None]
  - HAEMATURIA [None]
  - HEADACHE [None]
  - HOARSENESS [None]
  - HYPOAESTHESIA [None]
  - MUSCLE SPASMS [None]
  - MYOCARDIAL INFARCTION [None]
  - NAUSEA [None]
  - NON-CARDIAC CHEST PAIN [None]
  - PAIN [None]
  - PENILE PAIN [None]
  - POST PROCEDURAL COMPLICATION [None]
  - RASH [None]
  - RENAL COLIC [None]
  - RENAL PAIN [None]
  - SOMNOLENCE [None]
  - TREMOR [None]
  - URINARY HESITATION [None]
  - WHEEZING [None]
